FAERS Safety Report 7997212-7 (Version None)
Quarter: 2011Q4

REPORT INFORMATION
  Report Type: 
  Country: None (occurrence: None)
  Receive Date: 20111221
  Receipt Date: 20111207
  Transmission Date: 20120403
  Serious: Yes (Other)
  Sender: FDA-Public Use
  Company Number: JP-SANOFI-AVENTIS-2011SA081948

PATIENT
  Age: 46 Year
  Sex: Female

DRUGS (5)
  1. TAXOTERE [Suspect]
     Route: 065
  2. EPIRUBICIN [Concomitant]
  3. TAXOTERE [Suspect]
     Dosage: 20 DRIPS PER MIN
     Route: 041
  4. FLUOROURACIL [Concomitant]
  5. CYCLOPHOSPHAMIDE [Concomitant]

REACTIONS (2)
  - CHOKING [None]
  - FLUSHING [None]
